FAERS Safety Report 14009367 (Version 2)
Quarter: 2017Q4

REPORT INFORMATION
  Report Type: Spontaneous
  Country: PT (occurrence: PT)
  Receive Date: 20170925
  Receipt Date: 20171016
  Transmission Date: 20180321
  Serious: Yes (Hospitalization)
  Sender: FDA-Public Use
  Company Number: PT-LPDUSPRD-20171299

PATIENT
  Age: 67 Year
  Sex: Male

DRUGS (10)
  1. GLIMEPIRIDA [Concomitant]
     Active Substance: GLIMEPIRIDE
     Dosage: 1 DOSAGE FORMS, 1 IN 1 DAY
     Route: 065
  2. COAPROVEL [Concomitant]
     Active Substance: HYDROCHLOROTHIAZIDE\IRBESARTAN
     Dosage: 1 DOSAGE FORMS, 1 IN 1 DAY
     Route: 065
  3. GABAPENTINA [Concomitant]
     Active Substance: GABAPENTIN
     Dosage: 1 DOSAGE FORMS, 1 IN 1 DAY
     Route: 065
  4. ZANICOR [Concomitant]
     Dosage: 1 DOSAGE FORMS, 1 IN 1 DAY
     Route: 065
  5. RISIDON [Concomitant]
     Active Substance: METFORMIN HYDROCHLORIDE
     Dosage: 1 DOSAGE FORMS, 1 IN 1 DAY
     Route: 065
  6. TRAJENTA [Concomitant]
     Active Substance: LINAGLIPTIN
     Dosage: 1 DOSAGE FORMS, 1 IN 1 DAY
     Route: 065
  7. DAFLON [Concomitant]
     Active Substance: DIOSMIN\HESPERIDIN
     Dosage: 1 DOSAGE FORMS, 1 IN 1 DAY
     Route: 065
  8. FERINJECT [Suspect]
     Active Substance: FERRIC CARBOXYMALTOSE
     Dosage: 1000 MG
     Route: 042
     Dates: start: 20170821, end: 20170821
  9. TROMALYT [Concomitant]
     Active Substance: ASPIRIN
     Dosage: 1 DOSAGE FORMS, 1 IN 1 DAY
     Route: 065
  10. CIALIS [Concomitant]
     Active Substance: TADALAFIL
     Dosage: 1 DOSAGE FORMS, 1 IN 1 DAY
     Route: 065

REACTIONS (1)
  - Seizure [Unknown]

NARRATIVE: CASE EVENT DATE: 20170821
